FAERS Safety Report 8265771-5 (Version None)
Quarter: 2012Q2

REPORT INFORMATION
  Report Type: 
  Country: None (occurrence: None)
  Receive Date: 20120406
  Receipt Date: 20120402
  Transmission Date: 20120825
  Serious: Yes (Death, Hospitalization, Other)
  Sender: FDA-Public Use
  Company Number: PHHY2012US027999

PATIENT
  Age: 37 Year
  Sex: Male

DRUGS (3)
  1. AZITHROMYCIN [Concomitant]
  2. METHOTREXATE [Suspect]
     Dosage: 20 MG, UNK
     Route: 042
  3. SULFAMETHOXAZOLE AND TRIMETHOPRIM [Suspect]

REACTIONS (23)
  - PALMAR ERYTHEMA [None]
  - ODYNOPHAGIA [None]
  - MUCOSAL INFLAMMATION [None]
  - DIARRHOEA [None]
  - PANCYTOPENIA [None]
  - FACE OEDEMA [None]
  - PSORIASIS [None]
  - ULCER [None]
  - INCORRECT DOSE ADMINISTERED [None]
  - FEBRILE NEUTROPENIA [None]
  - ORAL MUCOSA EROSION [None]
  - RASH PUSTULAR [None]
  - ERYTHEMA [None]
  - DISCOMFORT [None]
  - HYPOTENSION [None]
  - DRUG INTERACTION [None]
  - TENDERNESS [None]
  - BACK PAIN [None]
  - DYSPHAGIA [None]
  - HEPATITIS ACUTE [None]
  - TOXICITY TO VARIOUS AGENTS [None]
  - RENAL FAILURE ACUTE [None]
  - NECROSIS [None]
